FAERS Safety Report 10367239 (Version 3)
Quarter: 2014Q4

REPORT INFORMATION
  Report Type: Spontaneous
  Country: DK (occurrence: DK)
  Receive Date: 20140807
  Receipt Date: 20141217
  Transmission Date: 20150528
  Serious: Yes (Hospitalization)
  Sender: FDA-Public Use
  Company Number: DK-ROCHE-1445704

PATIENT
  Age: 68 Year
  Sex: Male

DRUGS (6)
  1. SENDOXAN [Suspect]
     Active Substance: CYCLOPHOSPHAMIDE
     Indication: CHRONIC LYMPHOCYTIC LEUKAEMIA
     Dosage: 7 SERIES GIVEN, MOST RECENT DOSE RECEIVED ON 03/FEB/2011
     Route: 065
     Dates: start: 20100819
  2. CIFIN [Suspect]
     Active Substance: CIPROFLOXACIN HYDROCHLORIDE
     Indication: PNEUMONIA
     Route: 048
     Dates: start: 201207
  3. MABTHERA [Suspect]
     Active Substance: RITUXIMAB
     Indication: CHRONIC LYMPHOCYTIC LEUKAEMIA
     Route: 042
     Dates: start: 20100819, end: 20111123
  4. E-Z-CAT DRY [Suspect]
     Active Substance: BARIUM SULFATE
     Indication: POSITRON EMISSION TOMOGRAM
     Route: 065
  5. LEVACT (DENMARK) [Suspect]
     Active Substance: BENDAMUSTINE HYDROCHLORIDE
     Indication: CHRONIC LYMPHOCYTIC LEUKAEMIA
     Dosage: STRENGTH 2.5MG/ML, SIX SERIES GIVEN, MOST RECENT DOSE RECEIVED ON 23/NOV/2011
     Route: 042
     Dates: start: 20110701
  6. FLUDARA [Suspect]
     Active Substance: FLUDARABINE PHOSPHATE
     Indication: CHRONIC LYMPHOCYTIC LEUKAEMIA
     Dosage: 2 SERIES, MOST RECENT DOSE RECEIVED ON 31/OCT/2010
     Route: 048
     Dates: start: 20100930

REACTIONS (1)
  - Renal impairment [Recovered/Resolved]

NARRATIVE: CASE EVENT DATE: 201208
